FAERS Safety Report 14246681 (Version 1)
Quarter: 2017Q4

REPORT INFORMATION
  Report Type: Spontaneous
  Country: CA (occurrence: CA)
  Receive Date: 20171201
  Receipt Date: 20171201
  Transmission Date: 20180321
  Serious: Yes (Disabling, Other)
  Sender: FDA-Public Use
  Company Number: None

PATIENT
  Age: 26 Month
  Sex: Male
  Weight: 67.5 kg

DRUGS (1)
  1. INVEGA SUSTENNA [Suspect]
     Active Substance: PALIPERIDONE PALMITATE
     Indication: SCHIZOPHRENIA
     Route: 030

REACTIONS (5)
  - Ocular hyperaemia [None]
  - Hyperhidrosis [None]
  - Anxiety [None]
  - Quality of life decreased [None]
  - Skin burning sensation [None]

NARRATIVE: CASE EVENT DATE: 20171201
